FAERS Safety Report 6476568-0 (Version None)
Quarter: 2009Q4

REPORT INFORMATION
  Report Type: 
  Country: None (occurrence: None)
  Receive Date: 20091207
  Receipt Date: 20090813
  Transmission Date: 20100525
  Serious: No
  Sender: FDA-Public Use
  Company Number: US-AMGEN-KDL329639

PATIENT
  Sex: Female
  Weight: 70.4 kg

DRUGS (6)
  1. ENBREL [Suspect]
     Indication: RHEUMATOID ARTHRITIS
     Route: 058
     Dates: start: 20010101
  2. AVAPRO [Concomitant]
  3. AMBIEN [Concomitant]
  4. ERGOCALCIFEROL [Concomitant]
  5. PREDNISONE [Concomitant]
  6. TYLENOL (CAPLET) [Concomitant]

REACTIONS (7)
  - ARTHRALGIA [None]
  - CHOLELITHIASIS [None]
  - FATIGUE [None]
  - HYPERTENSION [None]
  - INJECTION SITE PAIN [None]
  - INSOMNIA [None]
  - PHOTOSENSITIVITY REACTION [None]
